FAERS Safety Report 4992345-1 (Version None)
Quarter: 2006Q2

REPORT INFORMATION
  Report Type: 
  Country: None (occurrence: None)
  Receive Date: 20060502
  Receipt Date: 20060426
  Transmission Date: 20061013
  Serious: Yes (Death)
  Sender: FDA-Public Use
  Company Number: 163-21880-06040859

PATIENT
  Age: 76 Year
  Sex: Male

DRUGS (1)
  1. REVLIMID [Suspect]
     Indication: MYELODYSPLASTIC SYNDROME
     Dosage: 5 MG, EVERY OTHER DAY, ORAL
     Route: 048
     Dates: start: 20060301, end: 20060413

REACTIONS (2)
  - PNEUMONIA ASPIRATION [None]
  - REGURGITATION OF FOOD [None]
